FAERS Safety Report 7921405-8 (Version None)
Quarter: 2011Q4

REPORT INFORMATION
  Report Type: 
  Country: None (occurrence: None)
  Receive Date: 20111117
  Receipt Date: 20111031
  Transmission Date: 20120403
  Serious: Yes (Other)
  Sender: FDA-Public Use
  Company Number: PL-PFIZER INC-2011279782

PATIENT
  Age: 31 Year
  Sex: Female
  Weight: 80 kg

DRUGS (2)
  1. SAQUINAVIR [Suspect]
     Indication: HIV INFECTION
  2. NELFINAVIR MESYLATE [Suspect]
     Indication: HIV INFECTION

REACTIONS (1)
  - OSTEOPOROSIS [None]
